FAERS Safety Report 7874761-3 (Version None)
Quarter: 2011Q4

REPORT INFORMATION
  Report Type: 
  Country: None (occurrence: None)
  Receive Date: 20111031
  Receipt Date: 20111017
  Transmission Date: 20120403
  Serious: Yes (Other)
  Sender: FDA-Public Use
  Company Number: US-ELI_LILLY_AND_COMPANY-US201110004660

PATIENT
  Age: 76 Year
  Sex: Female

DRUGS (6)
  1. HUMALOG [Suspect]
     Dosage: 5 U, TID
  2. NOVOLIN 70/30 [Concomitant]
  3. HUMALOG [Suspect]
     Indication: TYPE 1 DIABETES MELLITUS
     Dosage: 5 U, TID
  4. HUMULIN 70/30 [Suspect]
  5. LANTUS [Concomitant]
     Dosage: 12 U, UNKNOWN
  6. REGULAR ILETIN 2 [Suspect]

REACTIONS (18)
  - NEPHROPATHY [None]
  - LUNG DISORDER [None]
  - CATARACT [None]
  - HYPERTHYROIDISM [None]
  - FATIGUE [None]
  - ANAEMIA [None]
  - FRUSTRATION [None]
  - KETOACIDOSIS [None]
  - HAEMORRHAGE [None]
  - BLOOD GLUCOSE INCREASED [None]
  - FEELING ABNORMAL [None]
  - HYPERSOMNIA [None]
  - OESOPHAGEAL CARCINOMA [None]
  - HYPOKINESIA [None]
  - ANXIETY [None]
  - ASTHENIA [None]
  - BLOOD GLUCOSE DECREASED [None]
  - BLOOD GLUCOSE FLUCTUATION [None]
